FAERS Safety Report 8543007-5 (Version None)
Quarter: 2012Q3

REPORT INFORMATION
  Report Type: 
  Country: None (occurrence: None)
  Receive Date: 20120727
  Receipt Date: 20120717
  Transmission Date: 20120928
  Serious: Yes (Hospitalization, Other)
  Sender: FDA-Public Use
  Company Number: GB-JNJFOC-20120708944

PATIENT
  Age: 40 Year
  Sex: Male
  Weight: 92.5 kg

DRUGS (3)
  1. ALKA SELTZER XS [Suspect]
     Indication: ABDOMINAL DISCOMFORT
     Route: 065
     Dates: start: 20120609, end: 20120609
  2. OMEPRAZOLE [Concomitant]
     Indication: ABDOMINAL DISCOMFORT
  3. IBUPROFEN [Suspect]
     Indication: GASTRIC DISORDER
     Dosage: 200 MG TWICE PER DAY
     Route: 065
     Dates: start: 20120609, end: 20120609

REACTIONS (9)
  - DIZZINESS [None]
  - HYPOAESTHESIA [None]
  - PARAESTHESIA [None]
  - QUADRIPLEGIA [None]
  - ASTHENIA [None]
  - MOBILITY DECREASED [None]
  - VIITH NERVE PARALYSIS [None]
  - MALAISE [None]
  - ABDOMINAL DISCOMFORT [None]
